FAERS Safety Report 20491000 (Version 1)
Quarter: 2022Q1

REPORT INFORMATION
  Report Type: Report from Study
  Country: DK (occurrence: DK)
  Receive Date: 20220218
  Receipt Date: 20220218
  Transmission Date: 20220424
  Serious: Yes (Hospitalization, Other)
  Sender: FDA-Public Use
  Company Number: DK-TAKEDA-DK201711312

PATIENT
  Age: 43 Year
  Sex: Male
  Weight: 63 kg

DRUGS (11)
  1. TEDUGLUTIDE [Suspect]
     Active Substance: TEDUGLUTIDE
     Indication: Short-bowel syndrome
     Dosage: UNK, UNKNOWN
     Route: 058
  2. TEDUGLUTIDE [Suspect]
     Active Substance: TEDUGLUTIDE
     Indication: Short-bowel syndrome
     Dosage: UNK, UNKNOWN
     Route: 058
  3. TEDUGLUTIDE [Suspect]
     Active Substance: TEDUGLUTIDE
     Indication: Short-bowel syndrome
     Dosage: UNK, UNKNOWN
     Route: 058
  4. TEDUGLUTIDE [Suspect]
     Active Substance: TEDUGLUTIDE
     Indication: Short-bowel syndrome
     Dosage: UNK, UNKNOWN
     Route: 058
  5. CHOLECALCIFEROL [Concomitant]
     Active Substance: CHOLECALCIFEROL
     Indication: Vitamin D deficiency
     Dosage: 300000 IU, OTHER
     Route: 058
     Dates: start: 2013
  6. ACLASTA [Concomitant]
     Active Substance: ZOLEDRONIC ACID
     Indication: Osteoporosis
     Dosage: 5.0 MG, OTHER
     Route: 042
     Dates: start: 2013
  7. ESOMEPRAZOL                        /01479301/ [Concomitant]
     Indication: Short-bowel syndrome
     Dosage: 40.0 MG, 2X/DAY:BID
     Route: 042
     Dates: start: 2006
  8. LOCOID [Concomitant]
     Active Substance: HYDROCORTISONE BUTYRATE
     Indication: Erythema
     Dosage: UNK UNK, TID
     Route: 061
     Dates: start: 20200805, end: 20200815
  9. CLOXACILLIN [Concomitant]
     Active Substance: CLOXACILLIN
     Indication: Device related infection
     Dosage: 1 GRAM, QID
     Route: 042
     Dates: start: 20200318, end: 20200324
  10. KETOCONAZOLE [Concomitant]
     Active Substance: KETOCONAZOLE
     Indication: Skin lesion
     Dosage: 5 MILLILITER, BID
     Route: 061
     Dates: start: 20160630
  11. ERGOCALCIFEROL [Concomitant]
     Active Substance: ERGOCALCIFEROL
     Indication: Supplementation therapy
     Dosage: 300000 INTERNATIONAL UNIT
     Route: 030
     Dates: start: 20170705

REACTIONS (2)
  - Device related sepsis [Recovered/Resolved]
  - Osteomyelitis [Recovered/Resolved]

NARRATIVE: CASE EVENT DATE: 20170322
